FAERS Safety Report 18746138 (Version 8)
Quarter: 2025Q3

REPORT INFORMATION
  Report Type: Report from Study
  Country: US (occurrence: US)
  Receive Date: 20210115
  Receipt Date: 20250728
  Transmission Date: 20251021
  Serious: Yes (Hospitalization, Other)
  Sender: TAKEDA
  Company Number: US-TAKEDA-US202023687

PATIENT
  Sex: Female

DRUGS (3)
  1. HUMAN IMMUNOGLOBULIN G [Suspect]
     Active Substance: HUMAN IMMUNOGLOBULIN G
     Indication: Immunodeficiency common variable
     Dosage: UNK UNK, MONTHLY
  2. HUMAN IMMUNOGLOBULIN G [Suspect]
     Active Substance: HUMAN IMMUNOGLOBULIN G
     Indication: Primary immunodeficiency syndrome
     Dosage: 30 GRAM, MONTHLY
  3. HUMAN IMMUNOGLOBULIN G [Suspect]
     Active Substance: HUMAN IMMUNOGLOBULIN G
     Dosage: UNK UNK, MONTHLY

REACTIONS (14)
  - Pneumonia [Recovering/Resolving]
  - Granuloma [Unknown]
  - COVID-19 [Unknown]
  - Depressed mood [Unknown]
  - Alopecia [Unknown]
  - Infusion related reaction [Unknown]
  - Pain [Unknown]
  - Malaise [Unknown]
  - Anaemia [Unknown]
  - Cough [Unknown]
  - Chills [Unknown]
  - Pyrexia [Unknown]
  - Arthralgia [Unknown]
  - Influenza [Unknown]
